FAERS Safety Report 20920274 (Version 2)
Quarter: 2022Q4

REPORT INFORMATION
  Report Type: Spontaneous
  Country: PL (occurrence: PL)
  Receive Date: 20220606
  Receipt Date: 20221021
  Transmission Date: 20230113
  Serious: Yes (Death)
  Sender: FDA-Public Use
  Company Number: PL-002147023-NVSC2022PL122261

PATIENT
  Age: 32 Year
  Sex: Female

DRUGS (6)
  1. DEXAMETHASONE [Suspect]
     Active Substance: DEXAMETHASONE
     Indication: Plasma cell myeloma
     Dosage: UNK
     Route: 065
  2. DEXAMETHASONE [Suspect]
     Active Substance: DEXAMETHASONE
     Indication: Systemic mastocytosis
  3. VELCADE [Suspect]
     Active Substance: BORTEZOMIB
     Indication: Plasma cell myeloma
     Dosage: UNK
     Route: 065
  4. VELCADE [Suspect]
     Active Substance: BORTEZOMIB
     Indication: Systemic mastocytosis
  5. RYDAPT [Suspect]
     Active Substance: MIDOSTAURIN
     Indication: Plasma cell myeloma
     Dosage: UNK
     Route: 065
  6. RYDAPT [Suspect]
     Active Substance: MIDOSTAURIN
     Indication: Systemic mastocytosis

REACTIONS (1)
  - Oncologic complication [Fatal]
